FAERS Safety Report 12603828 (Version 1)
Quarter: 2016Q3

REPORT INFORMATION
  Report Type: Spontaneous
  Country: US (occurrence: US)
  Receive Date: 20160728
  Receipt Date: 20160728
  Transmission Date: 20161109
  Serious: No
  Sender: FDA-Public Use
  Company Number: US-MYLANLABS-2016M1015665

PATIENT

DRUGS (1)
  1. LEVOTHYROXINE SODIUM TABLETS, USP [Suspect]
     Active Substance: LEVOTHYROXINE SODIUM
     Indication: HYPOPITUITARISM
     Dosage: 112 ?G, QD
     Route: 048
     Dates: start: 2015

REACTIONS (5)
  - Malaise [Not Recovered/Not Resolved]
  - Splenomegaly [Not Recovered/Not Resolved]
  - Musculoskeletal chest pain [Not Recovered/Not Resolved]
  - Pancreatic disorder [Not Recovered/Not Resolved]
  - Reaction to drug excipients [Not Recovered/Not Resolved]

NARRATIVE: CASE EVENT DATE: 2015
